FAERS Safety Report 19404851 (Version 1)
Quarter: 2021Q2

REPORT INFORMATION
  Report Type: Spontaneous
  Country: AT (occurrence: AT)
  Receive Date: 20210611
  Receipt Date: 20210611
  Transmission Date: 20210717
  Serious: Yes (Other)
  Sender: FDA-Public Use
  Company Number: AT-SUN PHARMACEUTICAL INDUSTRIES LTD-2021RR-300400

PATIENT
  Age: 16 Year
  Sex: Female

DRUGS (16)
  1. LAMOTRIGINE. [Suspect]
     Active Substance: LAMOTRIGINE
     Dosage: SLOWLY INCREASED BY 25 MG EVERY 1?2 WEEKS UNTIL A DAILY DOSAGE OF 200 MG
     Route: 065
  2. LEVETIRACETAM. [Suspect]
     Active Substance: LEVETIRACETAM
     Dosage: SLOWLY TITRATED UP TO 2 GRAM, DAILY WITHIN 6 WEEKS
     Route: 065
  3. ZONISAMIDE. [Suspect]
     Active Substance: ZONISAMIDE
     Dosage: 350 MILLIGRAM, DAILY
     Route: 065
  4. TOPIRAMATE. [Suspect]
     Active Substance: TOPIRAMATE
     Indication: MIGRAINE
     Dosage: 100 MILLIGRAM, DAILY
     Route: 065
  5. PREGABALIN. [Suspect]
     Active Substance: PREGABALIN
     Dosage: SLOWLY TITRATED UP TO A DAILY DOSE OF 250 MILLIGRAM
     Route: 065
  6. LAMOTRIGINE. [Suspect]
     Active Substance: LAMOTRIGINE
     Indication: MIGRAINE WITH AURA
     Dosage: 125 MILLIGRAM
     Route: 065
     Dates: start: 201608
  7. FLUNARIZINE [Concomitant]
     Active Substance: FLUNARIZINE
     Indication: MIGRAINE WITH AURA
     Dosage: 10 MILLIGRAM, DAILY
     Route: 065
  8. METHYLPREDNISOLONE. [Suspect]
     Active Substance: METHYLPREDNISOLONE
     Indication: MIGRAINE WITH AURA
     Dosage: 80 MILLIGRAM, DAILY
     Route: 048
     Dates: start: 2017
  9. ZONISAMIDE. [Suspect]
     Active Substance: ZONISAMIDE
     Indication: MIGRAINE WITH AURA
     Dosage: 50 MILLIGRAM
     Route: 065
     Dates: start: 201805
  10. DRONABINOL. [Concomitant]
     Active Substance: DRONABINOL
     Indication: MIGRAINE WITH AURA
     Dosage: 2.5 MILLIGRAM
     Route: 065
  11. METHYLPREDNISOLONE. [Suspect]
     Active Substance: METHYLPREDNISOLONE
     Dosage: TAPERING THE DOSE BY A HALF EVERY FIFTH DAY
     Route: 048
  12. CORTISONE [Concomitant]
     Active Substance: CORTISONE
     Indication: STATUS MIGRAINOSUS
     Dosage: UNK
     Route: 042
     Dates: start: 201801
  13. PREGABALIN. [Suspect]
     Active Substance: PREGABALIN
     Indication: MIGRAINE WITH AURA
     Dosage: 50 MILLIGRAM, DAILY, DIVIDED INTO TWO SINGLE DOSES
     Route: 065
  14. VALPROIC ACID. [Suspect]
     Active Substance: VALPROIC ACID
     Indication: MIGRAINE WITH AURA
     Dosage: 1000 MILLIGRAM, DAILY
     Route: 065
  15. ZONISAMIDE. [Suspect]
     Active Substance: ZONISAMIDE
     Dosage: INCREASING THE DOSAGE BY 50 MG EVERY WEEK
     Route: 065
  16. LEVETIRACETAM. [Suspect]
     Active Substance: LEVETIRACETAM
     Indication: MIGRAINE WITH AURA
     Dosage: 500 MILLIGRAM, DAILY
     Route: 065

REACTIONS (6)
  - Off label use [Unknown]
  - Aphasia [Unknown]
  - Disturbance in attention [Unknown]
  - Drug ineffective [Unknown]
  - Behaviour disorder [Unknown]
  - Weight increased [Unknown]
